FAERS Safety Report 10372997 (Version 1)
Quarter: 2014Q3

REPORT INFORMATION
  Report Type: Spontaneous
  Country: US (occurrence: US)
  Receive Date: 20140808
  Receipt Date: 20140808
  Transmission Date: 20150326
  Serious: No
  Sender: FDA-Public Use
  Company Number: US-BRISTOL-MYERS SQUIBB COMPANY-19895382

PATIENT
  Age: 68 Year
  Sex: Male

DRUGS (1)
  1. SPRYCEL [Suspect]
     Active Substance: DASATINIB
     Dosage: ONGOING.?TABS
     Route: 048

REACTIONS (7)
  - Vomiting [Unknown]
  - Upper respiratory tract infection [Unknown]
  - Retching [Unknown]
  - Nodule [Unknown]
  - Decreased appetite [Unknown]
  - Hiccups [Unknown]
  - Blood glucose increased [Unknown]

NARRATIVE: CASE EVENT DATE: 2013
